FAERS Safety Report 8196544-X (Version None)
Quarter: 2012Q1

REPORT INFORMATION
  Report Type: 
  Country: None (occurrence: None)
  Receive Date: 20120309
  Receipt Date: 20120227
  Transmission Date: 20120608
  Serious: Yes (Hospitalization)
  Sender: FDA-Public Use
  Company Number: CA-BRISTOL-MYERS SQUIBB COMPANY-16422487

PATIENT
  Age: 52 Year
  Sex: Male

DRUGS (3)
  1. WARFARIN SODIUM [Suspect]
  2. ANCROD [Suspect]
  3. HEPARIN SODIUM [Suspect]
     Indication: ISCHAEMIA
     Dosage: 1DF: 51000 UNITS OVER 59 HRS

REACTIONS (3)
  - HEPARIN-INDUCED THROMBOCYTOPENIA [None]
  - ISCHAEMIA [None]
  - DEEP VEIN THROMBOSIS [None]
